FAERS Safety Report 5822096-2 (Version None)
Quarter: 2008Q3

REPORT INFORMATION
  Report Type: 
  Country: None (occurrence: None)
  Receive Date: 20080725
  Receipt Date: 20080716
  Transmission Date: 20090109
  Serious: Yes (Other)
  Sender: FDA-Public Use
  Company Number: US-BAYER-200811992BCC

PATIENT
  Age: 59 Year
  Sex: Female
  Weight: 48 kg

DRUGS (1)
  1. ALEVE [Suspect]
     Indication: NECK PAIN
     Dosage: UNIT DOSE: 220 MG
     Route: 048

REACTIONS (1)
  - HAEMATOCHEZIA [None]
